FAERS Safety Report 23675301 (Version 1)
Quarter: 2024Q1

REPORT INFORMATION
  Report Type: Report from Study
  Country: BR (occurrence: BR)
  Receive Date: 20240327
  Receipt Date: 20240327
  Transmission Date: 20240410
  Serious: Yes (Hospitalization, Other)
  Sender: FDA-Public Use
  Company Number: BR-JNJFOC-20240359185

PATIENT
  Sex: Male

DRUGS (3)
  1. REMICADE [Suspect]
     Active Substance: INFLIXIMAB
     Indication: Crohn^s disease
     Route: 041
  2. INFLIXIMAB [Suspect]
     Active Substance: INFLIXIMAB
     Indication: Crohn^s disease
     Dosage: 4 BOXES
     Route: 065
     Dates: start: 2008
  3. MESALAMINE [Concomitant]
     Active Substance: MESALAMINE

REACTIONS (6)
  - Hospitalisation [Unknown]
  - Skin cancer [Unknown]
  - Chronic obstructive pulmonary disease [Unknown]
  - Chemical burn of skin [Unknown]
  - Bedridden [Unknown]
  - Cardiac disorder [Unknown]
